FAERS Safety Report 4375412-5 (Version None)
Quarter: 2004Q2

REPORT INFORMATION
  Report Type: 
  Country: None (occurrence: None)
  Receive Date: 20040607
  Receipt Date: 20031001
  Transmission Date: 20050107
  Serious: Yes (Other)
  Sender: FDA-Public Use
  Company Number: 348349

PATIENT
  Sex: Male
  Weight: 63.5 kg

DRUGS (1)
  1. ACCUTANE [Suspect]
     Indication: DRUG USE FOR UNKNOWN INDICATION
     Dosage: 20 MG 2 PER DAY ORAL
     Route: 048
     Dates: start: 20030721, end: 20030926

REACTIONS (4)
  - ADVERSE EVENT [None]
  - DEPRESSION [None]
  - INSOMNIA [None]
  - MOOD SWINGS [None]
